FAERS Safety Report 8777598 (Version 1)
Quarter: 2012Q4

REPORT INFORMATION
  Report Type: 
  Country: US (occurrence: US)
  Receive Date: 20120911
  Receipt Date: 20120911
  Transmission Date: 20130627
  Serious: Yes (Hospitalization)
  Sender: FDA-Public Use
  Company Number: US-FRI-1000028141

PATIENT
  Age: 70 Year
  Sex: Female

DRUGS (5)
  1. ARMOUR THYROID [Suspect]
     Indication: HYPOTHYROIDISM
     Dosage: 30 mg
     Route: 048
     Dates: start: 2008, end: 201101
  2. ARMOUR THYROID [Suspect]
     Indication: HYPOTHYROIDISM
     Dosage: 30 mg
     Route: 048
     Dates: start: 20120205, end: 20120519
  3. ARMOUR THYROID [Suspect]
     Indication: HYPOTHYROIDISM
     Dosage: 60 mg
     Route: 048
     Dates: start: 20120520
  4. ARMOUR THYROID [Suspect]
     Dosage: 30 mg
     Route: 048
     Dates: end: 20120830
  5. XANAX [Concomitant]

REACTIONS (12)
  - Hypertension [Recovered/Resolved]
  - Heart rate increased [Recovered/Resolved]
  - Dysarthria [Recovered/Resolved]
  - Depression [Unknown]
  - Malaise [Unknown]
  - Anxiety [Unknown]
  - Alopecia [Unknown]
  - Insomnia [Unknown]
  - Palpitations [Unknown]
  - Constipation [Not Recovered/Not Resolved]
  - Feeling abnormal [Not Recovered/Not Resolved]
  - Tri-iodothyronine uptake increased [Recovered/Resolved]
